FAERS Safety Report 11126926 (Version 1)
Quarter: 2015Q2

REPORT INFORMATION
  Report Type: Report from Study
  Country: US (occurrence: US)
  Receive Date: 20150520
  Receipt Date: 20150520
  Transmission Date: 20150821
  Serious: Yes (Hospitalization, Other)
  Sender: FDA-Public Use
  Company Number: US-OPTUM INSIGHT (CANADA) INC., A MAPI COMPANY-1039625

PATIENT
  Sex: Male

DRUGS (1)
  1. PHOTOFRIN [Suspect]
     Active Substance: PORFIMER SODIUM
     Indication: PLEURAL MESOTHELIOMA MALIGNANT
     Route: 042

REACTIONS (16)
  - Oedema [Recovered/Resolved]
  - Pneumonia [Recovered/Resolved]
  - Acute kidney injury [Recovered/Resolved]
  - Decubitus ulcer [Not Recovered/Not Resolved]
  - Pulmonary air leakage [Recovered/Resolved]
  - Sepsis [Recovered/Resolved]
  - Pleural effusion [Recovered/Resolved]
  - Respiratory distress [Not Recovered/Not Resolved]
  - Respiratory failure [Recovered/Resolved]
  - Atrial fibrillation [Recovered/Resolved]
  - Pneumothorax [Not Recovered/Not Resolved]
  - Hypotension [Recovered/Resolved]
  - Localised oedema [Not Recovered/Not Resolved]
  - Malnutrition [Recovered/Resolved]
  - Oedema peripheral [Recovered/Resolved]
  - Empyema [Not Recovered/Not Resolved]

NARRATIVE: CASE EVENT DATE: 20141104
